FAERS Safety Report 23598122 (Version 5)
Quarter: 2024Q4

REPORT INFORMATION
  Report Type: Report from Study
  Country: US (occurrence: US)
  Receive Date: 20240305
  Receipt Date: 20241007
  Transmission Date: 20250115
  Serious: Yes (Hospitalization)
  Sender: EISAI
  Company Number: US-Eisai-EC-2024-160521

PATIENT
  Age: 62 Year
  Sex: Female

DRUGS (3)
  1. LENVATINIB [Suspect]
     Active Substance: LENVATINIB
     Indication: Ovarian clear cell carcinoma
     Dosage: STRENGTH: 4 MG
     Route: 048
     Dates: start: 20240201, end: 20240224
  2. LENVATINIB [Suspect]
     Active Substance: LENVATINIB
     Dosage: DOSE: UNK STRENGTH: 10 MG
     Route: 048
     Dates: start: 202402
  3. PEMBROLIZUMAB [Suspect]
     Active Substance: PEMBROLIZUMAB
     Indication: Ovarian clear cell carcinoma
     Dosage: FREQUNECY: UNKNOWN
     Route: 042
     Dates: start: 20240223

REACTIONS (7)
  - Cardiac failure congestive [Not Recovered/Not Resolved]
  - Pyrexia [Not Recovered/Not Resolved]
  - Influenza like illness [Recovered/Resolved]
  - Constipation [Not Recovered/Not Resolved]
  - Abdominal pain [Recovering/Resolving]
  - Asthenia [Unknown]
  - Hyponatraemia [Unknown]

NARRATIVE: CASE EVENT DATE: 20240101
